FAERS Safety Report 14127336 (Version 2)
Quarter: 2017Q4

REPORT INFORMATION
  Report Type: Report from Study
  Country: US (occurrence: US)
  Receive Date: 20171026
  Receipt Date: 20171121
  Transmission Date: 20180321
  Serious: Yes (Hospitalization, Other)
  Sender: FDA-Public Use
  Company Number: US-GILEAD-2017-0295469

PATIENT
  Age: 66 Year
  Sex: Female

DRUGS (26)
  1. AVELOX [Concomitant]
     Active Substance: MOXIFLOXACIN HYDROCHLORIDE
  2. CEPHALEXIN                         /00145501/ [Concomitant]
     Active Substance: CEPHALEXIN
  3. FUROSEMIDE. [Concomitant]
     Active Substance: FUROSEMIDE
  4. LASIX [Concomitant]
     Active Substance: FUROSEMIDE
  5. GABAPENTIN. [Concomitant]
     Active Substance: GABAPENTIN
  6. MULTIVITAMINES WITH IRON           /02170101/ [Concomitant]
  7. MUPIROCIN. [Concomitant]
     Active Substance: MUPIROCIN
  8. PREDNISONE. [Concomitant]
     Active Substance: PREDNISONE
  9. LEVOTHYROXIN [Concomitant]
     Active Substance: LEVOTHYROXINE
  10. METHOTREXATE. [Concomitant]
     Active Substance: METHOTREXATE
  11. METOLAZONE. [Concomitant]
     Active Substance: METOLAZONE
  12. CALCIUM + VITAMIN D                /01817601/ [Concomitant]
     Active Substance: CALCIUM LACTATE\CALCIUM PHOSPHATE\CHOLECALCIFEROL
  13. PLAQUENIL                          /00072602/ [Concomitant]
     Active Substance: HYDROXYCHLOROQUINE DIPHOSPHATE
  14. RESTASIS [Concomitant]
     Active Substance: CYCLOSPORINE
  15. TRAMADOL. [Concomitant]
     Active Substance: TRAMADOL
  16. HYDROXYCHLOROQUINE [Concomitant]
     Active Substance: HYDROXYCHLOROQUINE
  17. PROLIA [Concomitant]
     Active Substance: DENOSUMAB
  18. SILDENAFIL. [Concomitant]
     Active Substance: SILDENAFIL
  19. CYCLOBENZAPRINE. [Concomitant]
     Active Substance: CYCLOBENZAPRINE
  20. AMBRISENTAN [Suspect]
     Active Substance: AMBRISENTAN
     Indication: PULMONARY HYPERTENSION
     Dosage: 5 MG, QD
     Route: 065
     Dates: start: 20091015
  21. FERROUS FUMARATE [Concomitant]
     Active Substance: FERROUS FUMARATE
  22. PANTOPRAZOLE [Concomitant]
     Active Substance: PANTOPRAZOLE
  23. SPIRONOLACTONE. [Concomitant]
     Active Substance: SPIRONOLACTONE
  24. CEFDINIR. [Concomitant]
     Active Substance: CEFDINIR
  25. GEL KAM [Concomitant]
  26. REMODULIN [Concomitant]
     Active Substance: TREPROSTINIL

REACTIONS (5)
  - Pulmonary arterial hypertension [Recovered/Resolved]
  - Pneumonia [Recovered/Resolved]
  - Renal disorder [Recovered/Resolved]
  - Urinary tract infection [Recovered/Resolved]
  - Drug dose omission [Not Recovered/Not Resolved]

NARRATIVE: CASE EVENT DATE: 201709
